FAERS Safety Report 20519773 (Version 2)
Quarter: 2022Q1

REPORT INFORMATION
  Report Type: Spontaneous
  Country: US (occurrence: US)
  Receive Date: 20220225
  Receipt Date: 20220314
  Transmission Date: 20220424
  Serious: No
  Sender: FDA-Public Use
  Company Number: US-AMGEN-USASP2022028898

PATIENT
  Age: 64 Year
  Sex: Male
  Weight: 62 kg

DRUGS (3)
  1. PARSABIV [Suspect]
     Active Substance: ETELCALCETIDE HYDROCHLORIDE
     Indication: Blood parathyroid hormone abnormal
     Dosage: 2.5 MILLIGRAM, Q3WK
     Route: 042
     Dates: start: 20211117, end: 20220111
  2. PARSABIV [Suspect]
     Active Substance: ETELCALCETIDE HYDROCHLORIDE
     Indication: Hyperparathyroidism secondary
     Dosage: 5 MILLIGRAM, Q3WK
     Route: 042
     Dates: start: 20220112, end: 20220210
  3. PARSABIV [Suspect]
     Active Substance: ETELCALCETIDE HYDROCHLORIDE
     Dosage: 7.5 MILLIGRAM, Q3WK
     Route: 042
     Dates: start: 20220211

REACTIONS (3)
  - Therapy non-responder [Not Recovered/Not Resolved]
  - Blood calcium decreased [Not Recovered/Not Resolved]
  - Blood parathyroid hormone increased [Not Recovered/Not Resolved]

NARRATIVE: CASE EVENT DATE: 20211117
